FAERS Safety Report 5853253-7 (Version None)
Quarter: 2008Q3

REPORT INFORMATION
  Report Type: 
  Country: None (occurrence: None)
  Receive Date: 20080821
  Receipt Date: 20080811
  Transmission Date: 20090109
  Serious: Yes (Other)
  Sender: FDA-Public Use
  Company Number: US-GILEAD-2008-0017814

PATIENT
  Age: 24 Year
  Sex: Female

DRUGS (3)
  1. ATRIPLA [Suspect]
     Route: 048
     Dates: start: 20080216, end: 20080514
  2. COMBIVIR [Suspect]
     Route: 048
     Dates: start: 20080515
  3. KALETRA [Suspect]
     Route: 048
     Dates: start: 20080515

REACTIONS (3)
  - ABORTION INDUCED [None]
  - DRUG EXPOSURE DURING PREGNANCY [None]
  - INTRA-UTERINE DEATH [None]
